FAERS Safety Report 9821923 (Version 1)
Quarter: 2014Q1

REPORT INFORMATION
  Report Type: Spontaneous
  Country: DK (occurrence: FR)
  Receive Date: 20140116
  Receipt Date: 20140116
  Transmission Date: 20141002
  Serious: Yes (Hospitalization)
  Sender: FDA-Public Use
  Company Number: FR-FRI-1000052856

PATIENT
  Age: 46 Year
  Sex: Male

DRUGS (1)
  1. ESCITALOPRAM [Suspect]
     Route: 048
     Dates: start: 2007, end: 20091214

REACTIONS (3)
  - Suicide attempt [Recovered/Resolved]
  - Amnesia [Recovered/Resolved with Sequelae]
  - Urinary tract disorder [Recovered/Resolved with Sequelae]
